FAERS Safety Report 20725332 (Version 3)
Quarter: 2024Q3

REPORT INFORMATION
  Report Type: Spontaneous
  Country: US (occurrence: US)
  Receive Date: 20220419
  Receipt Date: 20240904
  Transmission Date: 20241017
  Serious: No
  Sender: KYOWA
  Company Number: US-KYOWAKIRIN-2022BKK005437

PATIENT

DRUGS (3)
  1. CRYSVITA [Suspect]
     Active Substance: BUROSUMAB-TWZA
     Indication: Hereditary hypophosphataemic rickets
     Dosage: 50 MG, 1X/2 WEEKS
     Route: 058
     Dates: start: 201812, end: 20240829
  2. CRYSVITA [Suspect]
     Active Substance: BUROSUMAB-TWZA
     Dosage: 40 MG, EVERY 14 DAYS
     Route: 058
     Dates: start: 20200811
  3. CRYSVITA [Suspect]
     Active Substance: BUROSUMAB-TWZA
     Indication: Hereditary hypophosphataemic rickets
     Dosage: 50 MG, 1X/2 WEEKS
     Route: 058
     Dates: start: 201812

REACTIONS (3)
  - Therapeutic product effect incomplete [Unknown]
  - Incorrect dose administered [Unknown]
  - Syringe issue [Unknown]
